FAERS Safety Report 14500289 (Version 1)
Quarter: 2018Q1

REPORT INFORMATION
  Report Type: Spontaneous
  Country: US (occurrence: US)
  Receive Date: 20180207
  Receipt Date: 20180207
  Transmission Date: 20180509
  Serious: No
  Sender: FDA-Public Use
  Company Number: US-MAYNE PHARMA-2017MYN002239

PATIENT

DRUGS (1)
  1. CYCLOSPORINE. [Suspect]
     Active Substance: CYCLOSPORINE
     Indication: MYELODYSPLASTIC SYNDROME
     Dosage: 50 MG, BID
     Route: 048

REACTIONS (2)
  - Drug dispensing error [Unknown]
  - Drug ineffective for unapproved indication [Unknown]
